FAERS Safety Report 5634744-0 (Version None)
Quarter: 2008Q1

REPORT INFORMATION
  Report Type: 
  Country: None (occurrence: None)
  Receive Date: 20080221
  Receipt Date: 20080221
  Transmission Date: 20080703
  Serious: Yes (Other)
  Sender: FDA-Public Use
  Company Number: None

PATIENT
  Age: 88 Year
  Sex: Female
  Weight: 40.8237 kg

DRUGS (4)
  1. LUCENTIS [Suspect]
     Indication: CHOROIDAL NEOVASCULARISATION
     Dosage: 1.0MG INTRAVITREAL INJ
     Dates: start: 20071010
  2. LUCENTIS [Suspect]
     Indication: CHOROIDAL NEOVASCULARISATION
     Dosage: 1.0 MG INTRAVITREAL INJ
     Dates: start: 20071205
  3. ZANTAC 150 [Concomitant]
  4. TYLENOL (CAPLET) [Concomitant]

REACTIONS (2)
  - BLOOD PRESSURE INCREASED [None]
  - TRANSIENT ISCHAEMIC ATTACK [None]
